FAERS Safety Report 5134247-6 (Version None)
Quarter: 2006Q4

REPORT INFORMATION
  Report Type: 
  Country: None (occurrence: None)
  Receive Date: 20061019
  Receipt Date: 20061009
  Transmission Date: 20070319
  Serious: Yes (Hospitalization)
  Sender: FDA-Public Use
  Company Number: 2006119460

PATIENT
  Age: 76 Year
  Sex: Female
  Weight: 67 kg

DRUGS (5)
  1. CELEBREX [Suspect]
     Indication: MUSCULOSKELETAL PAIN
     Dosage: 20 MG (20 MG, 1 IN 1 D), ORAL
     Route: 048
     Dates: start: 20060719, end: 20060724
  2. PREDNISONE TAB [Concomitant]
  3. NEBIVOLOL HCL [Concomitant]
  4. MARCUMAR [Concomitant]
  5. CITALOPRAM HYDROBROMIDE [Concomitant]

REACTIONS (2)
  - COLITIS [None]
  - GASTRITIS [None]
